FAERS Safety Report 4286544-4 (Version None)
Quarter: 2004Q1

REPORT INFORMATION
  Report Type: 
  Country: None (occurrence: None)
  Receive Date: 20040205
  Receipt Date: 20040127
  Transmission Date: 20041129
  Serious: Yes (Life-Threatening, Hospitalization, Other)
  Sender: FDA-Public Use
  Company Number: 04-01-0168

PATIENT
  Age: 35 Year
  Sex: Female
  Weight: 83 kg

DRUGS (5)
  1. PROCHLORPERAZINE MALEATE [Suspect]
     Indication: NAUSEA
     Dosage: 1 TID PRN ORAL
     Route: 048
     Dates: start: 20030630, end: 20030710
  2. CINNARIZINE [Concomitant]
  3. MENADIOL SODIUM DIPHOSPHATE [Concomitant]
  4. BETAHISTINE HYDROCHLORIDE [Concomitant]
  5. LEVONORGESTREL [Concomitant]

REACTIONS (3)
  - DRUG INEFFECTIVE [None]
  - JAUNDICE CHOLESTATIC [None]
  - VERTIGO [None]
